FAERS Safety Report 18251566 (Version 2)
Quarter: 2020Q3

REPORT INFORMATION
  Report Type: Report from Study
  Country: ZA (occurrence: ZA)
  Receive Date: 20200910
  Receipt Date: 20200911
  Transmission Date: 20201103
  Serious: Yes (Other)
  Sender: FDA-Public Use
  Company Number: PHHY2018ZA035705

PATIENT
  Sex: Female

DRUGS (2)
  1. ACLASTA [Suspect]
     Active Substance: ZOLEDRONIC ACID
     Dosage: 5 MG, Q12MO
     Route: 042
     Dates: start: 20190912
  2. ACLASTA [Suspect]
     Active Substance: ZOLEDRONIC ACID
     Indication: OSTEOPOROSIS
     Dosage: 1 DF, Q12MO
     Route: 041
     Dates: start: 20170407

REACTIONS (6)
  - Kyphosis [Unknown]
  - Bone density decreased [Not Recovered/Not Resolved]
  - Scoliosis [Unknown]
  - Aortic arteriosclerosis [Unknown]
  - Inappropriate schedule of product administration [Unknown]
  - Thoracic vertebral fracture [Unknown]
